FAERS Safety Report 8119376-7 (Version None)
Quarter: 2012Q1

REPORT INFORMATION
  Report Type: 
  Country: None (occurrence: None)
  Receive Date: 20120207
  Receipt Date: 20120203
  Transmission Date: 20120608
  Serious: Yes (Hospitalization)
  Sender: FDA-Public Use
  Company Number: US-JNJFOC-20120111886

PATIENT
  Sex: Female
  Weight: 63.3 kg

DRUGS (5)
  1. LOPERAMIDE HCL [Suspect]
     Indication: PRODUCT USED FOR UNKNOWN INDICATION
  2. ANTIBIOTICS [Concomitant]
     Indication: INFLAMMATORY BOWEL DISEASE
  3. REMICADE [Suspect]
     Indication: CROHN'S DISEASE
     Route: 042
     Dates: start: 20081202
  4. MULTI-VITAMINS [Concomitant]
  5. HUMIRA [Concomitant]
     Dates: start: 20090903

REACTIONS (1)
  - CROHN'S DISEASE [None]
